FAERS Safety Report 4477449-4 (Version None)
Quarter: 2004Q4

REPORT INFORMATION
  Report Type: 
  Country: None (occurrence: None)
  Receive Date: 20041013
  Receipt Date: 20041006
  Transmission Date: 20050328
  Serious: Yes (Other)
  Sender: FDA-Public Use
  Company Number: 200410598BCA

PATIENT
  Age: 76 Year
  Sex: Male

DRUGS (1)
  1. GAMUNEX [Suspect]
     Dosage: 20 G, INTRAVENOUS
     Route: 042
     Dates: start: 20040428

REACTIONS (2)
  - HYPERSENSITIVITY [None]
  - URTICARIA [None]
